FAERS Safety Report 4654880-5 (Version None)
Quarter: 2005Q2

REPORT INFORMATION
  Report Type: 
  Country: None (occurrence: None)
  Receive Date: 20050505
  Receipt Date: 20050426
  Transmission Date: 20051028
  Serious: Yes (Hospitalization)
  Sender: FDA-Public Use
  Company Number: CHPA2005US01182

PATIENT
  Sex: Male

DRUGS (3)
  1. GAS-X EXTRA STRENGTH SOFTGELS (NCH) (SIMETHICONE) SOFT GELATIN CAPSULE [Suspect]
     Indication: FLATULENCE
     Dosage: 2 DF, ONCE/SINGLE, ORAL
     Route: 048
     Dates: start: 20050424, end: 20050424
  2. PROCARDIA XL [Concomitant]
  3. PRINIVIL [Concomitant]

REACTIONS (3)
  - ABDOMINAL PAIN [None]
  - STOMACH DISCOMFORT [None]
  - VOMITING [None]
